FAERS Safety Report 7932197-0 (Version None)
Quarter: 2011Q4

REPORT INFORMATION
  Report Type: 
  Country: None (occurrence: None)
  Receive Date: 20111121
  Receipt Date: 20101206
  Transmission Date: 20120403
  Serious: No
  Sender: FDA-Public Use
  Company Number: US-AMGEN-USASP2010007618

PATIENT
  Sex: Male

DRUGS (4)
  1. VECTIBIX [Suspect]
     Indication: COLORECTAL CANCER
     Dosage: UNK
     Route: 042
     Dates: start: 20101115
  2. LEUCOVORIN CALCIUM [Concomitant]
  3. FLUOROURACIL [Concomitant]
  4. OXALIPLATIN [Concomitant]

REACTIONS (1)
  - RASH [None]
